FAERS Safety Report 8146847 (Version 8)
Quarter: 2012Q4

REPORT INFORMATION
  Report Type: 
  Country: US (occurrence: US)
  Receive Date: 20110921
  Receipt Date: 20121025
  Transmission Date: 20130627
  Serious: Yes (Death, Other)
  Sender: FDA-Public Use
  Company Number: PHEH2009US19086

PATIENT
  Sex: Female

DRUGS (19)
  1. FOLIC ACID [Concomitant]
     Dosage: 1 DF, BID
     Route: 048
  2. ACTONEL [Concomitant]
     Dosage: 1 DF, QW
     Route: 048
  3. CLARITIN [Concomitant]
  4. CELEBREX [Concomitant]
     Dosage: 200 mg, BID
     Route: 048
  5. AREDIA [Suspect]
     Indication: BREAST CANCER METASTATIC
  6. ZOMETA [Suspect]
     Indication: BREAST CANCER METASTATIC
     Route: 042
  7. ARIMIDEX [Suspect]
     Indication: BREAST CANCER METASTATIC
     Dosage: 1 mg, QD
     Route: 048
  8. OXYCONTIN [Concomitant]
     Dosage: 20 mg, BID
     Route: 048
  9. ROXICET [Concomitant]
  10. FLAGYL [Concomitant]
  11. NEURONTIN [Concomitant]
  12. MORPHINE [Concomitant]
  13. PREDNISONE [Concomitant]
     Dosage: 5 mg, BID
     Route: 048
  14. ZANTAC [Concomitant]
     Dosage: 150 mg, BID
     Route: 048
  15. ATIVAN [Concomitant]
     Dosage: 1 mg, BID
  16. CATAPRES                                /USA/ [Concomitant]
     Dosage: 0.1 mg, QW
  17. CLINDAMYCIN [Concomitant]
     Dosage: 300 mg, TID
     Route: 048
  18. METHOTREXATE [Concomitant]
  19. NEXIUM [Concomitant]
     Dosage: 1 DF, QD
     Route: 048

REACTIONS (70)
  - Death [Fatal]
  - Facet joint syndrome [Unknown]
  - Toothache [Unknown]
  - Arthritis [Unknown]
  - Osteoarthritis [Unknown]
  - Osteopenia [Unknown]
  - Scoliosis [Unknown]
  - Compression fracture [Unknown]
  - Pathological fracture [Unknown]
  - Osteomyelitis [Unknown]
  - Jaw fracture [Unknown]
  - Neuropathy peripheral [Unknown]
  - Pain in jaw [Unknown]
  - Hypertension [Unknown]
  - Osteonecrosis of jaw [Unknown]
  - Swelling face [Unknown]
  - Pain [Unknown]
  - Disability [Unknown]
  - Deformity [Unknown]
  - Impaired work ability [Unknown]
  - Anxiety [Unknown]
  - Anhedonia [Unknown]
  - Haemorrhoids [Unknown]
  - Rheumatoid arthritis [Unknown]
  - Sinus tachycardia [Unknown]
  - Neoplasm progression [Unknown]
  - Malignant neoplasm progression [Unknown]
  - Thermal burn [Unknown]
  - Depression [Unknown]
  - Osteoporosis postmenopausal [Unknown]
  - Spinal osteoarthritis [Unknown]
  - Cervical spinal stenosis [Unknown]
  - Herpes zoster [Unknown]
  - Intervertebral disc protrusion [Unknown]
  - Hearing impaired [Unknown]
  - Thrombosis [Unknown]
  - Cubital tunnel syndrome [Unknown]
  - Onychomycosis [Unknown]
  - Osteolysis [Unknown]
  - Hepatic steatosis [Unknown]
  - Renal cyst [Unknown]
  - Lumbar radiculopathy [Unknown]
  - Nephrolithiasis [Unknown]
  - Osteosclerosis [Unknown]
  - Inflammation [Unknown]
  - Demyelination [Unknown]
  - Dysphemia [Unknown]
  - Metastases to central nervous system [Unknown]
  - Dysphagia [Unknown]
  - Periodontitis [Unknown]
  - Exposed bone in jaw [Unknown]
  - Osteoradionecrosis [Unknown]
  - Device related infection [Unknown]
  - Abscess [Unknown]
  - Contusion [Unknown]
  - Rotator cuff syndrome [Unknown]
  - Metastases to liver [Unknown]
  - Neck pain [Unknown]
  - Abdominal pain [Unknown]
  - Oedema peripheral [Unknown]
  - Constipation [Unknown]
  - Vision blurred [Unknown]
  - Weight fluctuation [Unknown]
  - Appetite disorder [Unknown]
  - Gastrooesophageal reflux disease [Unknown]
  - Dyspepsia [Unknown]
  - Dyspnoea [Unknown]
  - Incontinence [Unknown]
  - Arthralgia [Unknown]
  - Hypoaesthesia [Unknown]
